FAERS Safety Report 8612052 (Version 4)
Quarter: 2012Q4

REPORT INFORMATION
  Report Type: 
  Country: DE (occurrence: DE)
  Receive Date: 20120613
  Receipt Date: 20121224
  Transmission Date: 20130627
  Serious: Yes (Other)
  Sender: FDA-Public Use
  Company Number: DE-GENZYME-CAMP-1002236

PATIENT
  Age: 69 Year
  Sex: Female
  Weight: 85 kg

DRUGS (10)
  1. CAMPATH [Suspect]
     Indication: T-CELL PROLYMPHOCYTIC LEUKAEMIA
     Dosage: 10 mg, UNK (Cycle 1) Induction therapy
     Route: 058
     Dates: start: 20101118, end: 20101120
  2. CAMPATH [Suspect]
     Dosage: 10 mg, UNK (Cycle 2) Induction therapy
     Route: 058
     Dates: start: 20101217, end: 20101219
  3. CAMPATH [Suspect]
     Dosage: 30 mg, UNK (Cycle 3) Induction therapy
     Route: 058
     Dates: start: 20110113, end: 20120115
  4. CAMPATH [Suspect]
     Dosage: 30 mg, UNK (Cycle 4) Induction therapy
     Route: 058
     Dates: start: 20110223, end: 20110225
  5. CAMPATH [Suspect]
     Dosage: UNK (maintaince therapy)
     Route: 065
     Dates: start: 20110615, end: 20120702
  6. FLUDARA [Suspect]
     Indication: T-CELL PROLYMPHOCYTIC LEUKAEMIA
     Dosage: 20 mg/m2, UNK, days 1-3
     Route: 042
     Dates: start: 20101118, end: 20110225
  7. CYCLOPHOSPHAMIDE [Suspect]
     Indication: T-CELL PROLYMPHOCYTIC LEUKAEMIA
     Dosage: 200 mg/m2, UNK, days 1-3
     Route: 042
     Dates: start: 20101118, end: 20110225
  8. MITOXANTRONE [Suspect]
     Indication: T-CELL PROLYMPHOCYTIC LEUKAEMIA
     Dosage: 6 mg/m2, UNK, day 1
     Route: 042
     Dates: start: 20101118, end: 20110223
  9. COTRIM [Concomitant]
     Indication: PRODUCT USED FOR UNKNOWN INDICATION
     Dosage: UNK
     Route: 065
  10. ALLOPURINOL [Concomitant]
     Indication: PRODUCT USED FOR UNKNOWN INDICATION
     Dosage: UNK
     Route: 065

REACTIONS (1)
  - T-cell prolymphocytic leukaemia [Not Recovered/Not Resolved]
